FAERS Safety Report 6771274-7 (Version None)
Quarter: 2010Q2

REPORT INFORMATION
  Report Type: 
  Country: None (occurrence: None)
  Receive Date: 20100616
  Receipt Date: 20100608
  Transmission Date: 20101027
  Serious: Yes (Hospitalization)
  Sender: FDA-Public Use
  Company Number: PHHY2010IT27039

PATIENT
  Sex: Male

DRUGS (2)
  1. TEGRETOL [Suspect]
     Indication: TRIGEMINAL NEURALGIA
     Dosage: 400 MG, UNK
     Route: 048
     Dates: start: 20100410, end: 20100412
  2. CONTRAMAL [Suspect]
     Indication: TRIGEMINAL NEURALGIA
     Dosage: 15 DROPS, DAILY
     Route: 048
     Dates: start: 20100412, end: 20100414

REACTIONS (3)
  - NAUSEA [None]
  - VERTIGO [None]
  - VOMITING [None]
